FAERS Safety Report 10064116 (Version 4)
Quarter: 2014Q4

REPORT INFORMATION
  Report Type: Spontaneous
  Country: US (occurrence: US)
  Receive Date: 20140408
  Receipt Date: 20141031
  Transmission Date: 20150528
  Serious: Yes (Other)
  Sender: FDA-Public Use
  Company Number: US-PFIZER INC-2014093850

PATIENT
  Age: 67 Year
  Sex: Female

DRUGS (4)
  1. SUTENT [Suspect]
     Active Substance: SUNITINIB MALATE
     Dosage: 25 MG, CYCLIC (1 DAILY, 4 WK ON, 2 OFF)
     Route: 048
     Dates: start: 20140307
  2. SUTENT [Suspect]
     Active Substance: SUNITINIB MALATE
     Indication: RENAL CELL CARCINOMA
     Dosage: 50 MG DAILY ON 4 WEEKS, OFF 2 WEEKS
     Route: 048
     Dates: end: 201309
  3. SUTENT [Suspect]
     Active Substance: SUNITINIB MALATE
     Dosage: 3 X 12.5 MG (37.5 MG), DAILY, CYCLIC (4 WEEKS ON, 2 WEEKS OFF)
     Route: 048
     Dates: start: 20140307
  4. SUTENT [Suspect]
     Active Substance: SUNITINIB MALATE
     Dosage: 25 MG, QD X 4 WEEKS
     Route: 048
     Dates: start: 201403

REACTIONS (8)
  - Ageusia [Unknown]
  - Stomatitis [Unknown]
  - Nausea [Not Recovered/Not Resolved]
  - Hair colour changes [Unknown]
  - Diarrhoea [Recovering/Resolving]
  - Dry skin [Unknown]
  - Pain of skin [Unknown]
  - Myalgia [Unknown]

NARRATIVE: CASE EVENT DATE: 20140331
